FAERS Safety Report 17484149 (Version 1)
Quarter: 2020Q1

REPORT INFORMATION
  Report Type: Spontaneous
  Country: US (occurrence: US)
  Receive Date: 20200219
  Receipt Date: 20200219
  Transmission Date: 20200409
  Serious: Yes (Hospitalization)
  Sender: FDA-Public Use
  Company Number: None

PATIENT
  Age: 58 Year
  Sex: Male

DRUGS (1)
  1. CAPECITABINE  500MG [Suspect]
     Active Substance: CAPECITABINE
     Indication: COLON CANCER
     Dosage: ?          OTHER DOSE:2-500MG;?
     Route: 048
     Dates: start: 20200120

REACTIONS (2)
  - Ill-defined disorder [None]
  - Therapy cessation [None]

NARRATIVE: CASE EVENT DATE: 20200211
